FAERS Safety Report 13740136 (Version 1)
Quarter: 2017Q3

REPORT INFORMATION
  Report Type: Report from Study
  Country: US (occurrence: BR)
  Receive Date: 20170711
  Receipt Date: 20170711
  Transmission Date: 20171127
  Serious: Yes (Other)
  Sender: FDA-Public Use
  Company Number: US-SUNOVION-2017SUN003021

PATIENT
  Sex: Male
  Weight: 65 kg

DRUGS (2)
  1. INDACATEROL AND GLYCOPYRROLATE [Suspect]
     Active Substance: GLYCOPYRROLATE\INDACATEROL MALEATE
     Indication: EMPHYSEMA
     Dosage: 1 DF (50 UG OF GLYCOPYRRONIUM BROMIDE, 110 UG OF INDACATEROL), QD
     Route: 055
  2. AAS [Concomitant]
     Active Substance: ASPIRIN

REACTIONS (3)
  - Cholelithiasis [Unknown]
  - Cough [Not Recovered/Not Resolved]
  - Dyspnoea [Not Recovered/Not Resolved]
